FAERS Safety Report 14127818 (Version 1)
Quarter: 2017Q4

REPORT INFORMATION
  Report Type: Spontaneous
  Country: US (occurrence: US)
  Receive Date: 20171026
  Receipt Date: 20171026
  Transmission Date: 20180321
  Serious: No
  Sender: FDA-Public Use
  Company Number: US-PFIZER INC-2017458869

PATIENT
  Age: 77 Year
  Sex: Female
  Weight: 70.76 kg

DRUGS (6)
  1. LEVOTHYROXINE. [Concomitant]
     Active Substance: LEVOTHYROXINE
     Indication: HYPOTHYROIDISM
     Dosage: 0.05 MG, 1X/DAY
  2. VITAMIN D [Concomitant]
     Active Substance: CHOLECALCIFEROL
     Indication: VITAMIN D DECREASED
     Dosage: UNKNOWN DOSE; EVERY OTHER DAY
  3. BIOTIN [Concomitant]
     Active Substance: BIOTIN
     Indication: NUTRITIONAL SUPPLEMENTATION
     Dosage: 10000 MG, 1X/DAY
  4. CRANBERRY. [Concomitant]
     Active Substance: CRANBERRY
     Indication: PROPHYLAXIS
     Dosage: 400 MG, 2X/DAY
  5. GLIPIZIDE. [Suspect]
     Active Substance: GLIPIZIDE
     Indication: DIABETES MELLITUS
     Dosage: 2.5 MG, 2X/DAY (5MG TABLETS. TAKES HALF TABLET IN MORINNG AND HALF AT NIGHT)
     Dates: start: 2017
  6. CENTRUM SILVER +50 [Concomitant]
     Indication: NUTRITIONAL SUPPLEMENTATION
     Dosage: TABLET ONCE A DAY

REACTIONS (2)
  - Alopecia [Not Recovered/Not Resolved]
  - Off label use [Unknown]

NARRATIVE: CASE EVENT DATE: 2017
